FAERS Safety Report 11666274 (Version 2)
Quarter: 2015Q4

REPORT INFORMATION
  Report Type: Spontaneous
  Country: JP (occurrence: JP)
  Receive Date: 20151027
  Receipt Date: 20151228
  Transmission Date: 20160304
  Serious: Yes (Death, Hospitalization, Other)
  Sender: FDA-Public Use
  Company Number: JP-ROCHE-1650623

PATIENT
  Age: 79 Year
  Sex: Male

DRUGS (20)
  1. HYDROCORTONE [Concomitant]
     Active Substance: HYDROCORTISONE
     Indication: PREMEDICATION
     Dosage: 30 MINUTES BEFORE RITUXIMAB INFUSION
     Route: 042
     Dates: start: 20140227, end: 20140327
  2. ZOVIRAX [Concomitant]
     Active Substance: ACYCLOVIR
     Indication: PROPHYLAXIS
     Route: 048
     Dates: start: 20140228
  3. NEODOPASOL [Concomitant]
     Active Substance: BENSERAZIDE HYDROCHLORIDE\LEVODOPA
     Dosage: START DATE: BEFORE MAR 2013
     Route: 048
  4. PREDNISONE. [Concomitant]
     Active Substance: PREDNISONE
     Indication: EXTRANODAL MARGINAL ZONE B-CELL LYMPHOMA (MALT TYPE)
     Route: 065
     Dates: start: 20130311, end: 20130507
  5. REQUIP [Concomitant]
     Active Substance: ROPINIROLE HYDROCHLORIDE
     Dosage: START DATE: BEFORE MAR 2013
     Route: 048
  6. METILON [Concomitant]
     Active Substance: METAMIZOLE SODIUM
     Indication: PREMEDICATION
     Dosage: 30 MINUTES BEFORE RITUXIMAB INFUSION
     Route: 042
     Dates: start: 20140227, end: 20140327
  7. REQUIP [Concomitant]
     Active Substance: ROPINIROLE HYDROCHLORIDE
     Route: 048
  8. MADOPAR [Concomitant]
     Active Substance: BENSERAZIDE HYDROCHLORIDE\LEVODOPA
     Route: 048
  9. URIEF [Concomitant]
     Active Substance: SILODOSIN
     Route: 048
  10. CYCLOPHOSPHAMIDE. [Concomitant]
     Active Substance: CYCLOPHOSPHAMIDE
     Indication: EXTRANODAL MARGINAL ZONE B-CELL LYMPHOMA (MALT TYPE)
     Route: 065
     Dates: start: 20130311, end: 20130507
  11. BEZATOL SR [Concomitant]
     Active Substance: BEZAFIBRATE
     Route: 048
  12. TAKEPRON OD [Concomitant]
     Active Substance: LANSOPRAZOLE
     Indication: PROPHYLAXIS
     Route: 048
     Dates: start: 201403
  13. RITUXAN [Suspect]
     Active Substance: RITUXIMAB
     Indication: EXTRANODAL MARGINAL ZONE B-CELL LYMPHOMA (MALT TYPE)
     Route: 042
     Dates: start: 20140227, end: 20140327
  14. TREAKISYM [Suspect]
     Active Substance: BENDAMUSTINE HYDROCHLORIDE
     Route: 042
  15. BAKTAR [Concomitant]
     Active Substance: SULFAMETHOXAZOLE\TRIMETHOPRIM
     Indication: PROPHYLAXIS
     Route: 048
     Dates: start: 20140228
  16. VINCRISTINE [Concomitant]
     Active Substance: VINCRISTINE
     Indication: EXTRANODAL MARGINAL ZONE B-CELL LYMPHOMA (MALT TYPE)
     Route: 065
     Dates: start: 20130311, end: 20130507
  17. TREAKISYM [Suspect]
     Active Substance: BENDAMUSTINE HYDROCHLORIDE
     Indication: EXTRANODAL MARGINAL ZONE B-CELL LYMPHOMA (MALT TYPE)
     Route: 042
     Dates: start: 20140227, end: 20140328
  18. TRAZENTA [Concomitant]
     Active Substance: LINAGLIPTIN
     Route: 048
     Dates: start: 20130820
  19. MAGMITT [Concomitant]
     Active Substance: MAGNESIUM OXIDE
     Route: 048
     Dates: start: 20130313
  20. BEZATOL SR [Concomitant]
     Active Substance: BEZAFIBRATE
     Dosage: START DATE: BEFORE MAR 2013
     Route: 048

REACTIONS (4)
  - Epstein-Barr virus associated lymphoproliferative disorder [Fatal]
  - Hepatitis B [Recovering/Resolving]
  - Cytomegalovirus infection [Recovered/Resolved]
  - Bacterial prostatitis [Recovered/Resolved]

NARRATIVE: CASE EVENT DATE: 20140327
